FAERS Safety Report 18467939 (Version 1)
Quarter: 2020Q4

REPORT INFORMATION
  Report Type: Spontaneous
  Country: US (occurrence: US)
  Receive Date: 20201105
  Receipt Date: 20201105
  Transmission Date: 20210114
  Serious: No
  Sender: FDA-Public Use
  Company Number: US-TEVA-2020-US-1840067

PATIENT
  Age: 66 Year
  Sex: Female

DRUGS (2)
  1. AUSTEDO [Suspect]
     Active Substance: DEUTETRABENAZINE
     Dosage: 24 MILLIGRAM DAILY;
     Route: 048
     Dates: start: 201908
  2. BUPROPION. [Suspect]
     Active Substance: BUPROPION
     Dosage: TOOK TOGETHER WITH AUSTEDO FOR THE PAST YEAR
     Route: 065

REACTIONS (1)
  - Tremor [Unknown]

NARRATIVE: CASE EVENT DATE: 20200401
